FAERS Safety Report 10154608 (Version 3)
Quarter: 2014Q2

REPORT INFORMATION
  Report Type: Spontaneous
  Country: US (occurrence: US)
  Receive Date: 20140506
  Receipt Date: 20140613
  Transmission Date: 20141212
  Serious: Yes (Other)
  Sender: FDA-Public Use
  Company Number: US-INCYTE CORPORATION-2014IN001146

PATIENT
  Sex: Male

DRUGS (5)
  1. JAKAFI [Suspect]
     Indication: MYELOPROLIFERATIVE DISORDER
     Dosage: 5 MG, BID
     Route: 048
     Dates: start: 20140219
  2. ALLOPURINOL [Concomitant]
  3. PROTONIX [Concomitant]
  4. FLOMAX                             /00889901/ [Concomitant]
  5. SYNTHROID [Concomitant]

REACTIONS (4)
  - White blood cell count increased [Not Recovered/Not Resolved]
  - Platelet count decreased [Not Recovered/Not Resolved]
  - Cellulitis [Not Recovered/Not Resolved]
  - Disease progression [Not Recovered/Not Resolved]
